FAERS Safety Report 19401675 (Version 1)
Quarter: 2021Q2

REPORT INFORMATION
  Report Type: Spontaneous
  Country: FR (occurrence: GB)
  Receive Date: 20210611
  Receipt Date: 20210611
  Transmission Date: 20210717
  Serious: Yes (Death, Other)
  Sender: FDA-Public Use
  Company Number: FR-TWI PHARMACEUTICAL, INC-2021SCTW000043

PATIENT

DRUGS (2)
  1. QUINIDINE [Concomitant]
     Active Substance: QUINIDINE
     Indication: CARDIAC FAILURE
     Dosage: UNK
     Route: 065
  2. TESTOSTERONE GEL [Suspect]
     Active Substance: TESTOSTERONE
     Indication: PRODUCT USED FOR UNKNOWN INDICATION
     Dosage: UNK
     Route: 065

REACTIONS (2)
  - Sudden cardiac death [Fatal]
  - Drug abuse [Unknown]
